FAERS Safety Report 6687921-4 (Version None)
Quarter: 2010Q2

REPORT INFORMATION
  Report Type: 
  Country: None (occurrence: None)
  Receive Date: 20100420
  Receipt Date: 20100401
  Transmission Date: 20101027
  Serious: Yes (Death, Hospitalization, Other)
  Sender: FDA-Public Use
  Company Number: IE-BAYER-201020866GPV

PATIENT
  Age: 61 Year
  Sex: Male

DRUGS (1)
  1. NEXAVAR [Suspect]
     Indication: HEPATIC NEOPLASM MALIGNANT
     Dosage: TOTAL DAILY DOSE: 800 MG
     Route: 048
     Dates: start: 20100217, end: 20100323

REACTIONS (5)
  - CONFUSIONAL STATE [None]
  - DIARRHOEA [None]
  - HAEMATOCHEZIA [None]
  - HEPATIC NEOPLASM MALIGNANT [None]
  - VOMITING [None]
